FAERS Safety Report 20006495 (Version 1)
Quarter: 2021Q4

REPORT INFORMATION
  Report Type: Spontaneous
  Country: US (occurrence: US)
  Receive Date: 20211028
  Receipt Date: 20211028
  Transmission Date: 20220303
  Serious: Yes (Death)
  Sender: FDA-Public Use
  Company Number: None

PATIENT
  Sex: Male

DRUGS (2)
  1. MYOBLOC [Suspect]
     Active Substance: RIMABOTULINUMTOXINB
     Indication: Saliva altered
     Dosage: ?          OTHER FREQUENCY:EVERY 90 DAYS;
     Route: 030
     Dates: start: 20210427
  2. PANTOPRAZOLE [Concomitant]
     Active Substance: PANTOPRAZOLE

REACTIONS (1)
  - Death [None]
